FAERS Safety Report 16446643 (Version 2)
Quarter: 2019Q4

REPORT INFORMATION
  Report Type: Report from Study
  Country: DE (occurrence: DE)
  Receive Date: 20190618
  Receipt Date: 20191210
  Transmission Date: 20200122
  Serious: Yes (Hospitalization, Other)
  Sender: FDA-Public Use
  Company Number: DE-MYLANLABS-2019M1056066

PATIENT
  Age: 27 Year
  Sex: Female
  Weight: 58 kg

DRUGS (9)
  1. AZATHIOPRINE. [Suspect]
     Active Substance: AZATHIOPRINE
     Indication: CROHN^S DISEASE
     Dosage: 100 MILLIGRAM (DOSAGE FORM: UNSPECIFIED)
     Route: 065
     Dates: start: 201105, end: 201812
  2. STELARA [Suspect]
     Active Substance: USTEKINUMAB
     Dosage: 390 MILLIGRAM (UNKNOWN,HKSOH02,ICS27MG,ICS27MG,IDS)
     Route: 058
     Dates: start: 20180619
  3. STELARA [Suspect]
     Active Substance: USTEKINUMAB
     Dosage: 390 MILLIGRAM
     Route: 058
     Dates: start: 20180619
  4. STELARA [Suspect]
     Active Substance: USTEKINUMAB
     Dosage: 90 MILLIGRAM (UNKNOWN,HKSOH02,ICS27MG,ICS27MG,IDS)
     Route: 058
     Dates: start: 20180822
  5. STELARA [Suspect]
     Active Substance: USTEKINUMAB
     Dosage: 90 MILLIGRAM (UNKNOWN,HKSOH02,ICS27MG,ICS27MG,IDS)
     Route: 058
     Dates: start: 20181019
  6. STELARA [Suspect]
     Active Substance: USTEKINUMAB
     Indication: CROHN^S DISEASE
     Dosage: 90 MILLIGRAM
     Route: 058
     Dates: start: 20181214
  7. STELARA [Suspect]
     Active Substance: USTEKINUMAB
     Dosage: 90 MILLIGRAM
     Route: 058
     Dates: start: 20181019
  8. STELARA [Suspect]
     Active Substance: USTEKINUMAB
     Dosage: 90 MILLIGRAM (UNKNOWN,HKSOH02,ICS27MG,ICS27MG,IDS)
     Route: 058
     Dates: start: 20181214
  9. STELARA [Suspect]
     Active Substance: USTEKINUMAB
     Dosage: 90 MILLIGRAM
     Route: 058
     Dates: start: 20180822

REACTIONS (1)
  - Jejunal stenosis [Not Recovered/Not Resolved]

NARRATIVE: CASE EVENT DATE: 20181217
